FAERS Safety Report 7783664-4 (Version None)
Quarter: 2011Q3

REPORT INFORMATION
  Report Type: 
  Country: None (occurrence: None)
  Receive Date: 20110928
  Receipt Date: 20110920
  Transmission Date: 20111222
  Serious: Yes (Other)
  Sender: FDA-Public Use
  Company Number: GB-UCBSA-041787

PATIENT
  Age: 72 Year
  Sex: Male

DRUGS (9)
  1. TAMSULOSIN HCL [Concomitant]
  2. ISOSORBIDE MONONITRATE [Suspect]
     Route: 048
     Dates: start: 20110718
  3. ACETYLSALICYLIC ACID SRT [Concomitant]
  4. ACETAMINOPHEN [Concomitant]
  5. OMEPRAZOLE [Concomitant]
  6. AMLODIPINE [Concomitant]
  7. FYBOGEL [Concomitant]
     Indication: CONSTIPATION
  8. PERINDOPRIL ERBUMINE [Concomitant]
  9. SIMVASTATIN [Concomitant]

REACTIONS (4)
  - SKIN DISCOLOURATION [None]
  - CONTUSION [None]
  - HEADACHE [None]
  - PRURITUS [None]
